FAERS Safety Report 7164433-5 (Version None)
Quarter: 2010Q4

REPORT INFORMATION
  Report Type: 
  Country: None (occurrence: None)
  Receive Date: 20101123
  Receipt Date: 20100831
  Transmission Date: 20110411
  Serious: No
  Sender: FDA-Public Use
  Company Number: 018091

PATIENT
  Sex: Female
  Weight: 69 kg

DRUGS (1)
  1. CIMZIA [Suspect]
     Indication: CROHN'S DISEASE
     Dosage: 400 MG 1X/3 WEEKS SUBCUTANEOUS
     Route: 058
     Dates: start: 20100628

REACTIONS (10)
  - ABDOMINAL PAIN [None]
  - DIARRHOEA [None]
  - FATIGUE [None]
  - HAEMATOCHEZIA [None]
  - HEART RATE INCREASED [None]
  - MUCOUS STOOLS [None]
  - MYALGIA [None]
  - PALPITATIONS [None]
  - PYREXIA [None]
  - WEIGHT DECREASED [None]
